FAERS Safety Report 7559388-5 (Version None)
Quarter: 2011Q2

REPORT INFORMATION
  Report Type: 
  Country: None (occurrence: None)
  Receive Date: 20110621
  Receipt Date: 20110615
  Transmission Date: 20111010
  Serious: Yes (Hospitalization)
  Sender: FDA-Public Use
  Company Number: JP-EISAI INC-E2090-01641-SPO-JP

PATIENT
  Age: 69 Year
  Sex: Male

DRUGS (1)
  1. ZONISAMIDE [Suspect]
     Dosage: 100 MG DAILY
     Route: 048
     Dates: start: 20110413, end: 20110501

REACTIONS (1)
  - RASH ERYTHEMATOUS [None]
